FAERS Safety Report 17754540 (Version 2)
Quarter: 2020Q2

REPORT INFORMATION
  Report Type: Report from Study
  Country: GB (occurrence: GB)
  Receive Date: 20200506
  Receipt Date: 20200617
  Transmission Date: 20200714
  Serious: Yes (Other)
  Sender: FDA-Public Use
  Company Number: NVSC2020GB122797

PATIENT
  Sex: Female

DRUGS (1)
  1. ERELZI [Suspect]
     Active Substance: ETANERCEPT-SZZS
     Indication: RHEUMATOID ARTHRITIS
     Dosage: 50 MG, QW
     Route: 065

REACTIONS (12)
  - Dyspnoea [Unknown]
  - Malaise [Unknown]
  - Wheezing [Recovering/Resolving]
  - Headache [Unknown]
  - Cough [Recovering/Resolving]
  - Seasonal allergy [Not Recovered/Not Resolved]
  - Productive cough [Not Recovered/Not Resolved]
  - Contusion [Unknown]
  - Bronchiectasis [Not Recovered/Not Resolved]
  - Haemorrhage [Unknown]
  - Asthma [Not Recovered/Not Resolved]
  - Lower respiratory tract infection [Not Recovered/Not Resolved]
